FAERS Safety Report 21160361 (Version 1)
Quarter: 2022Q3

REPORT INFORMATION
  Report Type: Spontaneous
  Country: US (occurrence: None)
  Receive Date: 20220801
  Receipt Date: 20220801
  Transmission Date: 20221027
  Serious: Yes (Other)
  Sender: FDA-Public Use
  Company Number: None

PATIENT
  Age: 30 Year
  Sex: Male
  Weight: 85.5 kg

DRUGS (4)
  1. GUANFACINE EXTENDED-RELEASE [Suspect]
     Active Substance: GUANFACINE
     Indication: Attention deficit hyperactivity disorder
     Dosage: OTHER QUANTITY : 1 TABLET(S);?FREQUENCY : TWICE A DAY;?
     Route: 048
     Dates: start: 20220613, end: 20220622
  2. GUANFACINE EXTENDED-RELEASE [Suspect]
     Active Substance: GUANFACINE
     Indication: Restlessness
  3. Vyvanse 70mg, 1x DAY [Concomitant]
  4. Vitamin D3,25MCG [Concomitant]

REACTIONS (3)
  - Product substitution issue [None]
  - Drug ineffective [None]
  - Negative thoughts [None]

NARRATIVE: CASE EVENT DATE: 20220613
